FAERS Safety Report 4952604-5 (Version None)
Quarter: 2006Q1

REPORT INFORMATION
  Report Type: 
  Country: None (occurrence: None)
  Receive Date: 20060317
  Receipt Date: 20060308
  Transmission Date: 20060701
  Serious: Yes (Hospitalization)
  Sender: FDA-Public Use
  Company Number: HQWYE377307APR04

PATIENT
  Age: 60 Year
  Sex: Male

DRUGS (1)
  1. MYLOTARG [Suspect]
     Indication: ACUTE MYELOID LEUKAEMIA
     Dosage: 14.46 MG 1X PER 1 DAY, INTRAVENOUS
     Route: 042
     Dates: start: 20040327, end: 20040327

REACTIONS (7)
  - BACTERIAL INFECTION [None]
  - BODY TEMPERATURE INCREASED [None]
  - CATHETER SITE ERYTHEMA [None]
  - FEBRILE NEUTROPENIA [None]
  - INFUSION RELATED REACTION [None]
  - ORTHOSTATIC HYPOTENSION [None]
  - WHITE BLOOD CELL COUNT DECREASED [None]
